FAERS Safety Report 5336267-5 (Version None)
Quarter: 2007Q2

REPORT INFORMATION
  Report Type: 
  Country: None (occurrence: None)
  Receive Date: 20070315
  Receipt Date: 20061206
  Transmission Date: 20071010
  Serious: No
  Sender: FDA-Public Use
  Company Number: BDI-008934

PATIENT
  Age: 62 Year
  Sex: Male

DRUGS (2)
  1. MULTIHANCE MULTIPACK [Suspect]
     Indication: NUCLEAR MAGNETIC RESONANCE IMAGING
     Dosage: 15 ML ONE IV
     Route: 042
     Dates: start: 20061129, end: 20061129
  2. MULTIHANCE MULTIPACK [Suspect]
     Indication: TINNITUS
     Dosage: 15 ML ONE IV
     Route: 042
     Dates: start: 20061129, end: 20061129

REACTIONS (3)
  - DYSPHONIA [None]
  - DYSPNOEA [None]
  - THROAT TIGHTNESS [None]
